FAERS Safety Report 12063082 (Version 2)
Quarter: 2016Q1

REPORT INFORMATION
  Report Type: Spontaneous
  Country: AT (occurrence: AT)
  Receive Date: 20160210
  Receipt Date: 20160212
  Transmission Date: 20160526
  Serious: Yes (Death)
  Sender: FDA-Public Use
  Company Number: AT-BAXALTA-2016BLT000569

PATIENT
  Age: 10 Month

DRUGS (2)
  1. CEPROTIN [Suspect]
     Active Substance: PROTEIN C
     Indication: INFLAMMATION
     Dosage: 500 IU, UNK
     Route: 065
  2. CEPROTIN [Suspect]
     Active Substance: PROTEIN C
     Dosage: 1000 IU, UNK
     Route: 065

REACTIONS (1)
  - Septic shock [Fatal]
